FAERS Safety Report 4382653-X (Version None)
Quarter: 2004Q2

REPORT INFORMATION
  Report Type: 
  Country: None (occurrence: None)
  Receive Date: 20040622
  Receipt Date: 20040610
  Transmission Date: 20050107
  Serious: Yes (Other)
  Sender: FDA-Public Use
  Company Number: GBWYE780225MAY04

PATIENT
  Age: 55 Year
  Sex: Female

DRUGS (7)
  1. AUGMENTIN [Suspect]
     Route: 065
  2. FLUOXETINE [Suspect]
     Route: 065
  3. UNSPECIFIED DRUG [Suspect]
     Dosage: 40MG UNKNOWN
     Route: 065
  4. METHOTREXATE [Suspect]
     Route: 065
  5. ROFECOXIB [Suspect]
     Route: 065
  6. CO-DYDRAMOL [Suspect]
     Route: 065
  7. PREMARIN [Suspect]
     Route: 065

REACTIONS (1)
  - EYE HAEMORRHAGE [None]
